FAERS Safety Report 10433551 (Version 2)
Quarter: 2014Q3

REPORT INFORMATION
  Report Type: Report from Study
  Country: US (occurrence: US)
  Receive Date: 20140905
  Receipt Date: 20140905
  Transmission Date: 20150326
  Serious: Yes (Disabling, Other)
  Sender: FDA-Public Use
  Company Number: US-BAYER-2014-111608

PATIENT
  Age: 57 Year
  Sex: Female
  Weight: 68.93 kg

DRUGS (11)
  1. HYDROCODONE [HYDROCODONE] [Concomitant]
  2. STIVARGA [Suspect]
     Active Substance: REGORAFENIB
     Indication: COLON CANCER
     Dosage: 120 MG/DAY (FOR 21 DAYS THEN OFF FOR 7 DAYS)
     Route: 048
     Dates: start: 20140711, end: 2014
  3. PROCHLORPERAZINE. [Concomitant]
     Active Substance: PROCHLORPERAZINE
  4. LEVOTHYROXINE [Concomitant]
     Active Substance: LEVOTHYROXINE
  5. METFORMIN [Concomitant]
     Active Substance: METFORMIN HYDROCHLORIDE
  6. STIVARGA [Suspect]
     Active Substance: REGORAFENIB
     Indication: COLON CANCER
     Dosage: 160 MG/DAY (FOR 21 DAYS THEN OFF FOR 7 DAYS)
     Route: 048
     Dates: start: 2014, end: 2014
  7. STIVARGA [Suspect]
     Active Substance: REGORAFENIB
     Indication: COLON CANCER
     Dosage: 120 MG/DAY (FOR 21 DAYS THEN OFF FOR 7 DAYS)
     Route: 048
     Dates: start: 2014, end: 2014
  8. STIVARGA [Suspect]
     Active Substance: REGORAFENIB
     Indication: COLON CANCER
     Dosage: 160 MG/DAY (FOR 21 DAYS THEN OFF FOR 7 DAYS)
     Route: 048
     Dates: start: 2014
  9. LISINOPRIL. [Concomitant]
     Active Substance: LISINOPRIL
  10. AMLODIPINE [Concomitant]
     Active Substance: AMLODIPINE BESYLATE
  11. LORTAB [Concomitant]
     Active Substance: ACETAMINOPHEN\HYDROCODONE BITARTRATE

REACTIONS (6)
  - Nausea [Unknown]
  - Vomiting [Unknown]
  - Pain in extremity [None]
  - Blood magnesium decreased [Unknown]
  - Skin fissures [Unknown]
  - Diarrhoea [Unknown]
